FAERS Safety Report 5815529-9 (Version None)
Quarter: 2008Q3

REPORT INFORMATION
  Report Type: 
  Country: None (occurrence: None)
  Receive Date: 20080716
  Receipt Date: 20080630
  Transmission Date: 20090109
  Serious: Yes (Hospitalization)
  Sender: FDA-Public Use
  Company Number: 8034070

PATIENT
  Age: 32 Year
  Sex: Male

DRUGS (3)
  1. KEPPRA [Suspect]
     Indication: CONVULSION
     Dosage: 500 MG 2/D PO
     Route: 048
  2. LAMICTAL [Concomitant]
  3. ZONEGRAN [Concomitant]

REACTIONS (5)
  - ABNORMAL BEHAVIOUR [None]
  - CEREBROVASCULAR ACCIDENT [None]
  - CONVULSION [None]
  - IMPAIRED SELF-CARE [None]
  - PSYCHOTIC DISORDER [None]
